FAERS Safety Report 23632131 (Version 1)
Quarter: 2024Q1

REPORT INFORMATION
  Report Type: Spontaneous
  Country: US (occurrence: US)
  Receive Date: 20240314
  Receipt Date: 20240314
  Transmission Date: 20240409
  Serious: No
  Sender: FDA-Public Use
  Company Number: US-SA-SAC20240308000333

PATIENT
  Age: 12 Year
  Sex: Male

DRUGS (2)
  1. ALPROLIX [Suspect]
     Active Substance: EFTRENONACOG ALFA
     Indication: Factor IX deficiency
     Dosage: 3500 U (3150-3850), QW
     Route: 041
     Dates: start: 201207
  2. ALPROLIX [Suspect]
     Active Substance: EFTRENONACOG ALFA
     Indication: Factor IX deficiency
     Dosage: 3500 U (3150-3850), QW
     Route: 041
     Dates: start: 201207

REACTIONS (5)
  - Haemorrhage [Unknown]
  - Fall [Unknown]
  - Bone contusion [Unknown]
  - Injury [Unknown]
  - Traumatic haemorrhage [Unknown]

NARRATIVE: CASE EVENT DATE: 20240224
